FAERS Safety Report 19615229 (Version 1)
Quarter: 2021Q3

REPORT INFORMATION
  Report Type: Spontaneous
  Country: FR (occurrence: FR)
  Receive Date: 20210727
  Receipt Date: 20210727
  Transmission Date: 20211014
  Serious: Yes (Hospitalization, Other)
  Sender: FDA-Public Use
  Company Number: FR-GLAXOSMITHKLINE-FR2021159836

PATIENT
  Age: 30 Year
  Sex: Male
  Weight: 100.5 kg

DRUGS (12)
  1. TEICOPLANIN [Suspect]
     Active Substance: TEICOPLANIN
     Indication: PRODUCT USED FOR UNKNOWN INDICATION
     Dosage: UNK
     Route: 065
     Dates: start: 20210518, end: 20210530
  2. BACTRIM [Suspect]
     Active Substance: SULFAMETHOXAZOLE\TRIMETHOPRIM
     Indication: BRAIN ABSCESS
     Dosage: UNK
     Route: 065
     Dates: start: 20210526
  3. METRONIDAZOLE. [Suspect]
     Active Substance: METRONIDAZOLE
     Indication: BRAIN ABSCESS
     Dosage: 1.5 G, QD, (500 MG X 3 PER DAY)
     Route: 065
     Dates: start: 20210526
  4. POSACONAZOLE [Suspect]
     Active Substance: POSACONAZOLE
     Indication: ASPERGILLUS INFECTION
     Dosage: 300 MG, QD, (300 MG IN THE EVENING)
     Route: 065
     Dates: start: 20210519
  5. MYCOPHENOLATE SODIUM [Suspect]
     Active Substance: MYCOPHENOLATE SODIUM
     Indication: GRAFT VERSUS HOST DISEASE
     Dosage: UNK
     Route: 065
     Dates: start: 202105, end: 20210615
  6. SOLIRIS [Suspect]
     Active Substance: ECULIZUMAB
     Indication: PRODUCT USED FOR UNKNOWN INDICATION
     Dosage: 900 MG (900 MG ON 05/20 THEN 1200 MG ON 05/28 AND 06/04)
     Route: 065
     Dates: start: 20210520
  7. SOLIRIS [Suspect]
     Active Substance: ECULIZUMAB
     Dosage: 1200 MG (900 MG ON 05/20 THEN 1200 MG ON 05/28 AND 06/04)
     Route: 065
  8. ACICLOVIR [Suspect]
     Active Substance: ACYCLOVIR
     Indication: MENINGOENCEPHALITIS HERPETIC
     Dosage: UNK
     Route: 065
     Dates: start: 20210517, end: 20210519
  9. CELLCEPT [Suspect]
     Active Substance: MYCOPHENOLATE MOFETIL\MYCOPHENOLATE MOFETIL HYDROCHLORIDE
     Indication: GRAFT VERSUS HOST DISEASE
     Dosage: UNK
     Route: 065
     Dates: end: 202105
  10. CEFOTAXIME [Suspect]
     Active Substance: CEFOTAXIME SODIUM
     Indication: BRAIN ABSCESS
     Dosage: 4 G, TID (4 G/6 H)
     Route: 065
     Dates: start: 20210526
  11. KEPPRA [Suspect]
     Active Substance: LEVETIRACETAM
     Indication: PRODUCT USED FOR UNKNOWN INDICATION
     Dosage: 2 DF, QD, (1 TAB X 2 PER DAY)
     Route: 065
     Dates: start: 20210520
  12. LETERMOVIR [Suspect]
     Active Substance: LETERMOVIR
     Indication: PRODUCT USED FOR UNKNOWN INDICATION
     Dosage: 240 MG, QD (240 MG/ DAY)
     Route: 065
     Dates: start: 20210512

REACTIONS (2)
  - Neutropenia [Recovering/Resolving]
  - Thrombotic microangiopathy [Recovering/Resolving]

NARRATIVE: CASE EVENT DATE: 20210516
